FAERS Safety Report 7901479-0 (Version None)
Quarter: 2011Q4

REPORT INFORMATION
  Report Type: 
  Country: None (occurrence: None)
  Receive Date: 20111108
  Receipt Date: 20111031
  Transmission Date: 20120403
  Serious: Yes (Other)
  Sender: FDA-Public Use
  Company Number: US-JNJFOC-20111002508

PATIENT
  Sex: Female
  Weight: 90.72 kg

DRUGS (13)
  1. REMICADE [Suspect]
     Route: 042
     Dates: start: 20110510
  2. REMICADE [Suspect]
     Dosage: 16TH INFUSION
     Route: 042
     Dates: start: 20111004, end: 20111004
  3. EVISTA [Concomitant]
     Route: 065
  4. REMICADE [Suspect]
     Route: 042
     Dates: start: 20110110
  5. REMICADE [Suspect]
     Route: 042
     Dates: start: 20110809
  6. CALCIUM [Concomitant]
  7. PREVACID [Concomitant]
  8. DIOVAN [Concomitant]
     Dosage: DOSE-80/12.5
     Route: 065
  9. IMURAN [Concomitant]
     Route: 065
  10. PREDNISONE [Concomitant]
     Route: 065
  11. REMICADE [Suspect]
     Indication: RHEUMATOID ARTHRITIS
     Route: 042
     Dates: start: 20070407
  12. REMICADE [Suspect]
     Route: 042
     Dates: start: 20110609
  13. NAPROXEN [Concomitant]
     Route: 065

REACTIONS (10)
  - HYPERHIDROSIS [None]
  - CYANOSIS [None]
  - VISION BLURRED [None]
  - BLOOD PRESSURE INCREASED [None]
  - CHEST PAIN [None]
  - DIZZINESS [None]
  - INFUSION RELATED REACTION [None]
  - THROAT IRRITATION [None]
  - ANXIETY [None]
  - TACHYCARDIA [None]
